FAERS Safety Report 7631471-5 (Version None)
Quarter: 2011Q3

REPORT INFORMATION
  Report Type: 
  Country: None (occurrence: None)
  Receive Date: 20110725
  Receipt Date: 20110720
  Transmission Date: 20111222
  Serious: Yes (Death, Other)
  Sender: FDA-Public Use
  Company Number: PHHY2011JP62463

PATIENT
  Age: 75 Year
  Sex: Female

DRUGS (5)
  1. NYROZIN [Concomitant]
     Dosage: UNK
     Route: 042
  2. CEFEPIME [Suspect]
     Dosage: UNK
     Route: 042
     Dates: start: 20110703, end: 20110703
  3. FAMOTIDINE [Concomitant]
     Route: 042
  4. SOLDEM 3PG [Concomitant]
     Dosage: UNK
     Route: 042
  5. LASIX [Concomitant]
     Dosage: UNK
     Route: 042

REACTIONS (2)
  - DEATH [None]
  - JAUNDICE [None]
